FAERS Safety Report 4541362-4 (Version None)
Quarter: 2004Q4

REPORT INFORMATION
  Report Type: 
  Country: None (occurrence: None)
  Receive Date: 20041227
  Receipt Date: 20041206
  Transmission Date: 20050328
  Serious: Yes (Hospitalization, Other)
  Sender: FDA-Public Use
  Company Number: 210011

PATIENT
  Age: 68 Year
  Sex: Female

DRUGS (10)
  1. MABTHERA(RITUXIMAB) CONC FOR SOLUTION FOR INFUSION [Suspect]
     Dosage: SEE IMAGE
     Route: 042
     Dates: start: 20021105, end: 20021126
  2. MABTHERA(RITUXIMAB) CONC FOR SOLUTION FOR INFUSION [Suspect]
     Dosage: SEE IMAGE
     Route: 042
     Dates: start: 20030714, end: 20030805
  3. MABTHERA(RITUXIMAB) CONC FOR SOLUTION FOR INFUSION [Suspect]
     Dosage: SEE IMAGE
     Route: 042
     Dates: start: 20040407, end: 20040412
  4. MABTHERA(RITUXIMAB) CONC FOR SOLUTION FOR INFUSION [Suspect]
     Dosage: SEE IMAGE
     Route: 042
     Dates: start: 20040507, end: 20040528
  5. ATENOLOL [Concomitant]
  6. IDEOS CPR (CALCIUM CARBONATE, CHOLECALCIFEROL) [Concomitant]
  7. FOLACIN (FOLIC ACID) [Concomitant]
  8. SOLU-CORTEF [Concomitant]
  9. PANODIL (ACETAMINOPHEN) [Concomitant]
  10. TAVEGYL (CLEMASTINE FUMARATE) [Concomitant]

REACTIONS (7)
  - CONDITION AGGRAVATED [None]
  - HEARING IMPAIRED [None]
  - INNER EAR DISORDER [None]
  - NYSTAGMUS [None]
  - OTOTOXICITY [None]
  - TINNITUS [None]
  - VERTIGO [None]
